FAERS Safety Report 9467116 (Version 1)
Quarter: 2013Q3

REPORT INFORMATION
  Report Type: Spontaneous
  Country: IT (occurrence: IT)
  Receive Date: 20130820
  Receipt Date: 20130820
  Transmission Date: 20140515
  Serious: Yes (Other)
  Sender: FDA-Public Use
  Company Number: IT-WATSON-2013-14988

PATIENT
  Age: 62 Year
  Sex: Female

DRUGS (3)
  1. METFORMIN (UNKNOWN) [Suspect]
     Indication: DIABETES MELLITUS
     Dosage: 1700 MG, DAILY
     Route: 048
     Dates: start: 20130424, end: 20130424
  2. LANTUS [Suspect]
     Indication: DIABETES MELLITUS
     Dosage: 12 IU, DAILY
     Route: 058
     Dates: start: 20130424, end: 20130424
  3. BLOPRESID [Concomitant]
     Indication: PRODUCT USED FOR UNKNOWN INDICATION
     Dosage: 16 / 12,5 MG  , UNKNOWN
     Route: 065

REACTIONS (1)
  - Hypoglycaemia [Recovering/Resolving]
